FAERS Safety Report 8315076-9 (Version None)
Quarter: 2012Q1

REPORT INFORMATION
  Report Type: 
  Country: None (occurrence: None)
  Receive Date: 20120315
  Receipt Date: 20110427
  Transmission Date: 20120608
  Serious: Yes (Other)
  Sender: FDA-Public Use
  Company Number: PHHY2011US35853

PATIENT
  Age: 50 Year
  Sex: Female

DRUGS (5)
  1. CITALOPRAM HYDROBROMIDE [Concomitant]
  2. GABAPENTIN [Concomitant]
  3. MICROBID (SULFAMETHOXAZOLE, TRIMETHOPRIM) [Concomitant]
  4. HYDROCHLOROTHIAZIDE [Concomitant]
  5. GILENYA [Suspect]
     Indication: MULTIPLE SCLEROSIS
     Dosage: 0.5 MG, QD
     Dates: start: 20110314

REACTIONS (4)
  - INFLUENZA LIKE ILLNESS [None]
  - PAIN [None]
  - VISION BLURRED [None]
  - DEPRESSION [None]
